FAERS Safety Report 18776197 (Version 1)
Quarter: 2021Q1

REPORT INFORMATION
  Report Type: Spontaneous
  Country: US (occurrence: US)
  Receive Date: 20210122
  Receipt Date: 20210122
  Transmission Date: 20210419
  Serious: Yes (Hospitalization)
  Sender: FDA-Public Use
  Company Number: US-TEVA-2021-US-1869874

PATIENT
  Age: 54 Year
  Sex: Male

DRUGS (6)
  1. PROPRANOLOL [Suspect]
     Active Substance: PROPRANOLOL HYDROCHLORIDE
     Dosage: 120 MILLIGRAM DAILY;
     Route: 048
  2. PROPYLTHIOURACIL. [Suspect]
     Active Substance: PROPYLTHIOURACIL
     Indication: THYROTOXIC CRISIS
     Dosage: 600 MILLIGRAM DAILY;
     Route: 065
  3. METHIMAZOLE. [Suspect]
     Active Substance: METHIMAZOLE
     Indication: THYROTOXIC CRISIS
     Dosage: 40 MILLIGRAM DAILY;
     Route: 065
  4. HYDROCORTISONE. [Suspect]
     Active Substance: HYDROCORTISONE
     Indication: THYROTOXIC CRISIS
     Dosage: 300 MILLIGRAM DAILY;
     Route: 065
  5. PROPRANOLOL [Suspect]
     Active Substance: PROPRANOLOL HYDROCHLORIDE
     Indication: THYROTOXIC CRISIS
     Dosage: 50 MILLIGRAM DAILY;
     Route: 048
  6. POTASSIUM IODIDE. [Suspect]
     Active Substance: POTASSIUM IODIDE
     Indication: THYROTOXIC CRISIS
     Route: 048

REACTIONS (2)
  - Hepatic failure [Recovering/Resolving]
  - Liver injury [Recovering/Resolving]
